FAERS Safety Report 4877886-X (Version None)
Quarter: 2006Q1

REPORT INFORMATION
  Report Type: 
  Country: None (occurrence: None)
  Receive Date: 20060109
  Receipt Date: 20051230
  Transmission Date: 20060701
  Serious: Yes (Life-Threatening, Hospitalization)
  Sender: FDA-Public Use
  Company Number: GBWYE270530DEC05

PATIENT
  Age: 22 Year
  Sex: Male

DRUGS (2)
  1. IBUPROFEN [Suspect]
     Dosage: ORAL
     Route: 048
  2. SOLPADEINE (CAFFEINE/CODEINE PHOSPHATE/PARACETAOMOL) [Concomitant]

REACTIONS (5)
  - INFECTION [None]
  - LYMPHOPENIA [None]
  - NEUTROPENIA [None]
  - PLATELET COUNT DECREASED [None]
  - TOXIC EPIDERMAL NECROLYSIS [None]
